FAERS Safety Report 7422184-3 (Version None)
Quarter: 2011Q2

REPORT INFORMATION
  Report Type: 
  Country: None (occurrence: None)
  Receive Date: 20110418
  Receipt Date: 20110223
  Transmission Date: 20111010
  Serious: Yes (Hospitalization, Other)
  Sender: FDA-Public Use
  Company Number: US-BAYER-201042134NA

PATIENT
  Age: 32 Year
  Sex: Female
  Weight: 78.005 kg

DRUGS (14)
  1. MULTI-VITAMINS [Concomitant]
  2. CIPRO [Concomitant]
     Dosage: 500 MG, BID
     Route: 048
     Dates: start: 20081006
  3. LAMICTAL [Concomitant]
     Dosage: 100 MG, QD
     Route: 048
  4. TRIMETHOPRIM [Concomitant]
     Dosage: UNK UNK, BID
     Dates: start: 20081121
  5. LOESTRIN 1.5/30 [Concomitant]
  6. PEPCID [Concomitant]
     Dosage: 20 MG, QD
     Route: 048
  7. YAZ [Suspect]
     Indication: ORAL CONTRACEPTION
     Dosage: UNK UNK, QD
     Route: 048
     Dates: start: 20080508, end: 20081208
  8. SERTRALINE [Concomitant]
     Indication: ANTIDEPRESSANT THERAPY
     Dosage: UNK UNK, QD
     Route: 048
     Dates: start: 20060101, end: 20110101
  9. GEODON [Concomitant]
     Indication: BIPOLAR DISORDER
     Dosage: 80 MG, QD
     Dates: start: 20060101, end: 20100101
  10. LEVOTHYROXINE SODIUM [Concomitant]
     Dosage: 50 MCG/24HR, QD
     Route: 048
     Dates: start: 20070116
  11. DIFLUCAN [Concomitant]
     Dosage: 150 MG, UNK
     Route: 048
     Dates: start: 20081201
  12. NSAID'S [Concomitant]
  13. DEPAKOTE ER [Concomitant]
     Dosage: 500 MG, QD
     Route: 048
  14. PEPCID [Concomitant]
     Dosage: 20 MG, BID

REACTIONS (1)
  - PULMONARY EMBOLISM [None]
